FAERS Safety Report 10577161 (Version 1)
Quarter: 2014Q4

REPORT INFORMATION
  Report Type: Spontaneous
  Country: US (occurrence: US)
  Receive Date: 20141111
  Receipt Date: 20141111
  Transmission Date: 20150529
  Serious: Yes (Other)
  Sender: FDA-Public Use
  Company Number: US-PFIZER INC-2014306385

PATIENT
  Sex: Male

DRUGS (2)
  1. CELEBREX [Suspect]
     Active Substance: CELECOXIB
     Dosage: 325 MG, UNK
  2. CELEBREX [Suspect]
     Active Substance: CELECOXIB
     Dosage: 81 MG, UNK

REACTIONS (3)
  - Hypertension [Unknown]
  - Haemorrhage [Unknown]
  - Arthritis [Unknown]
